FAERS Safety Report 12322798 (Version 1)
Quarter: 2016Q2

REPORT INFORMATION
  Report Type: Spontaneous
  Country: US (occurrence: US)
  Receive Date: 20160502
  Receipt Date: 20160502
  Transmission Date: 20160815
  Serious: No
  Sender: FDA-Public Use
  Company Number: ADR-2015-01627

PATIENT
  Age: 23 Year
  Sex: Male

DRUGS (3)
  1. LIORESAL [Suspect]
     Active Substance: BACLOFEN
     Dosage: 1000MCG/DAY
     Route: 037
  2. OXYCODONE [Suspect]
     Active Substance: OXYCODONE
     Route: 048
  3. COMPOUNDED BACLOFEN [Suspect]
     Active Substance: BACLOFEN
     Dosage: 899.9MCG/DAY
     Route: 037

REACTIONS (6)
  - Asthenopia [Unknown]
  - Weight decreased [Unknown]
  - Somnolence [Unknown]
  - Speech disorder [Unknown]
  - Therapeutic response increased [Unknown]
  - Presyncope [Unknown]
